FAERS Safety Report 8500967 (Version 4)
Quarter: 2013Q1

REPORT INFORMATION
  Report Type: Report from Study
  Country: AU (occurrence: AU)
  Receive Date: 20120410
  Receipt Date: 20130121
  Transmission Date: 20140127
  Serious: Yes (Hospitalization)
  Sender: FDA-Public Use
  Company Number: AU-JNJFOC-20120401661

PATIENT
  Age: 72 Year
  Sex: Male
  Weight: 101.2 kg

DRUGS (20)
  1. ABIRATERONE ACETATE [Suspect]
     Route: 048
  2. ABIRATERONE ACETATE [Suspect]
     Indication: PROSTATE CANCER METASTATIC
     Route: 048
     Dates: start: 20120229, end: 20120330
  3. PREDNISOLONE [Suspect]
     Indication: PROSTATE CANCER METASTATIC
     Route: 048
     Dates: start: 20120229, end: 20120412
  4. LACTULOSE SYRUP [Concomitant]
     Indication: CONSTIPATION PROPHYLAXIS
     Route: 065
     Dates: start: 20120329, end: 20120403
  5. ATROVENT [Concomitant]
     Indication: DYSPNOEA EXERTIONAL
     Route: 065
     Dates: start: 2000
  6. ENDONE [Concomitant]
     Indication: BONE PAIN
     Route: 065
     Dates: start: 2010
  7. MAXOLON [Concomitant]
     Indication: NAUSEA
     Route: 065
     Dates: start: 201111
  8. NEXIUM [Concomitant]
     Indication: GASTROOESOPHAGEAL REFLUX DISEASE
     Route: 065
     Dates: start: 20120301
  9. PANADOL OSTEO [Concomitant]
     Indication: BONE PAIN
     Route: 065
     Dates: start: 200012
  10. TARGIN [Concomitant]
     Indication: BONE PAIN
     Route: 065
     Dates: start: 2010
  11. WARFARIN [Concomitant]
     Indication: PULMONARY EMBOLISM
     Route: 065
     Dates: start: 20101222
  12. ELIGARD [Concomitant]
     Indication: HORMONE THERAPY
     Route: 065
     Dates: start: 200508
  13. NILSTAT [Concomitant]
     Indication: PROPHYLAXIS
     Route: 065
     Dates: start: 20120329
  14. ZOMETA [Concomitant]
     Indication: METASTASES TO BONE
     Route: 065
     Dates: start: 2009
  15. SLOW K [Concomitant]
     Indication: HYPOKALAEMIA
     Route: 065
     Dates: start: 20120403
  16. XYLOCAINE VISKEUS [Concomitant]
     Indication: GASTROOESOPHAGEAL REFLUX DISEASE
     Route: 065
     Dates: start: 20120404
  17. INTRAVENOUS FLUIDS [Concomitant]
     Indication: DEHYDRATION
     Route: 042
     Dates: start: 20120330, end: 20120404
  18. INTRAVENOUS FLUIDS [Concomitant]
     Indication: DEHYDRATION
     Route: 042
     Dates: start: 20120418, end: 20120421
  19. ZOFRAN [Concomitant]
     Indication: DEHYDRATION
     Route: 065
     Dates: start: 20120418, end: 20120421
  20. ZOFRAN [Concomitant]
     Indication: DEHYDRATION
     Route: 065
     Dates: start: 20120330, end: 20120404

REACTIONS (2)
  - Dehydration [Recovered/Resolved]
  - Dehydration [Recovered/Resolved]
